FAERS Safety Report 8472133-4 (Version None)
Quarter: 2012Q2

REPORT INFORMATION
  Report Type: 
  Country: None (occurrence: None)
  Receive Date: 20120627
  Receipt Date: 20120615
  Transmission Date: 20120825
  Serious: Yes (Hospitalization)
  Sender: FDA-Public Use
  Company Number: JP-UCBSA-058587

PATIENT
  Age: 45 Year
  Sex: Female

DRUGS (10)
  1. SELBEX [Suspect]
     Indication: GASTRITIS PROPHYLAXIS
     Dosage: DAILY DOSE : 100 MG
     Route: 048
     Dates: start: 20091216
  2. LOXONIN [Suspect]
     Indication: BACK PAIN
     Dosage: 60 MG
     Route: 048
     Dates: start: 20120315
  3. CALBLOCK [Suspect]
     Indication: HYPERTENSION
     Dosage: DAILY DOSE: 16 MG
     Route: 048
     Dates: start: 20120412
  4. CIMZIA [Suspect]
     Indication: RHEUMATOID ARTHRITIS
     Route: 058
     Dates: start: 20101027
  5. OLMESARTAN MEDOXOMIL [Suspect]
     Indication: HYPERTENSION
     Dosage: DAILY DOSE: 20 MG
     Route: 048
     Dates: start: 20120412
  6. KETOPROFEN [Suspect]
     Indication: BACK PAIN
     Dosage: SUFFICIENT QUANTITY
     Route: 062
     Dates: start: 20120315
  7. FOLIC ACID [Concomitant]
     Dates: start: 20110327
  8. CIMZIA [Suspect]
     Route: 058
     Dates: start: 20091028, end: 20101014
  9. CELEBREX [Suspect]
     Indication: RHEUMATOID ARTHRITIS
     Dosage: DAILY DOSE:200 MG
     Route: 048
     Dates: start: 20091216
  10. RHEUMATREX [Suspect]
     Indication: RHEUMATOID ARTHRITIS
     Route: 048
     Dates: start: 20110324

REACTIONS (1)
  - SUDDEN HEARING LOSS [None]
